FAERS Safety Report 16446462 (Version 1)
Quarter: 2019Q2

REPORT INFORMATION
  Report Type: Spontaneous
  Country: US (occurrence: US)
  Receive Date: 20190618
  Receipt Date: 20190618
  Transmission Date: 20190711
  Serious: No
  Sender: FDA-Public Use
  Company Number: US-CELGENEUS-USA-20190605227

PATIENT
  Sex: Male

DRUGS (2)
  1. OTEZLA [Suspect]
     Active Substance: APREMILAST
     Indication: PSORIASIS
     Dosage: STARTER PACK 10/20/30MG (28D)
     Route: 048
     Dates: start: 201905
  2. OTEZLA [Suspect]
     Active Substance: APREMILAST
     Dosage: MAINTENANCE DOSE
     Route: 048
     Dates: start: 2019

REACTIONS (2)
  - Product dose omission [Unknown]
  - Diarrhoea [Unknown]

NARRATIVE: CASE EVENT DATE: 2019
